FAERS Safety Report 13466474 (Version 1)
Quarter: 2017Q2

REPORT INFORMATION
  Report Type: Spontaneous
  Country: TR (occurrence: TR)
  Receive Date: 20170421
  Receipt Date: 20170421
  Transmission Date: 20170830
  Serious: Yes (Other)
  Sender: FDA-Public Use
  Company Number: TR-009507513-1704TUR005279

PATIENT

DRUGS (1)
  1. ESMERON [Suspect]
     Active Substance: ROCURONIUM BROMIDE
     Dosage: FORMULATION: VIAL

REACTIONS (2)
  - Endotracheal intubation complication [Unknown]
  - Drug ineffective [Unknown]
